FAERS Safety Report 10108857 (Version 1)
Quarter: 2014Q2

REPORT INFORMATION
  Report Type: Report from Study
  Country: US (occurrence: US)
  Receive Date: 20140425
  Receipt Date: 20140425
  Transmission Date: 20141212
  Serious: Yes (Other)
  Sender: FDA-Public Use
  Company Number: US-ALEXION-A200901480

PATIENT
  Sex: Male

DRUGS (2)
  1. SOLIRIS [Suspect]
     Indication: PAROXYSMAL NOCTURNAL HAEMOGLOBINURIA
     Dosage: UNK, Q 12 DAYS
     Route: 042
  2. SOLIRIS [Suspect]
     Dosage: UNK, Q2W
     Route: 042
     Dates: start: 20090112

REACTIONS (1)
  - Haemoglobin decreased [Unknown]
